FAERS Safety Report 20752511 (Version 1)
Quarter: 2022Q2

REPORT INFORMATION
  Report Type: Spontaneous
  Country: US (occurrence: None)
  Receive Date: 20220426
  Receipt Date: 20220426
  Transmission Date: 20220721
  Serious: No
  Sender: FDA-Public Use
  Company Number: US-ROCHE-2858614

PATIENT
  Sex: Male

DRUGS (2)
  1. ESBRIET [Suspect]
     Active Substance: PIRFENIDONE
     Indication: Osteoarthritis
     Dosage: TAKE 2 TABLETS BY MOUTH THREE TIMES A DAY: SUPPOSED TO TAKE WITH FOOD
     Route: 048
  2. DOXAZOSIN [Concomitant]
     Active Substance: DOXAZOSIN MESYLATE

REACTIONS (2)
  - Back disorder [Unknown]
  - Hypophagia [Unknown]
